FAERS Safety Report 9456739 (Version 2)
Quarter: 2013Q3

REPORT INFORMATION
  Report Type: Spontaneous
  Country: NL (occurrence: NL)
  Receive Date: 20130813
  Receipt Date: 20130904
  Transmission Date: 20140515
  Serious: Yes (Death, Hospitalization)
  Sender: FDA-Public Use
  Company Number: NL-PFIZER INC-2013233546

PATIENT
  Age: 65 Year
  Sex: Female

DRUGS (3)
  1. VENLAFAXINE HCL [Suspect]
     Dosage: 37.5 MG, 1X/DAY
     Dates: start: 2013
  2. RIVAROXABAN [Interacting]
     Indication: DEEP VEIN THROMBOSIS
     Dosage: 20 MG, 1X/DAY
     Dates: start: 201303, end: 20130801
  3. OMEPRAZOLE [Concomitant]
     Dosage: 20 MG, 1X/DAY
     Dates: start: 2013

REACTIONS (2)
  - Drug interaction [Fatal]
  - Haemorrhage intracranial [Fatal]
